FAERS Safety Report 21621582 (Version 1)
Quarter: 2022Q4

REPORT INFORMATION
  Report Type: Spontaneous
  Country: DE (occurrence: None)
  Receive Date: 20221121
  Receipt Date: 20221121
  Transmission Date: 20230113
  Serious: Yes (Hospitalization)
  Sender: FDA-Public Use
  Company Number: DE-ROCHE-3204644

PATIENT
  Sex: Female

DRUGS (1)
  1. OCREVUS [Suspect]
     Active Substance: OCRELIZUMAB
     Indication: Relapsing-remitting multiple sclerosis
     Route: 042
     Dates: start: 20221020, end: 20221020

REACTIONS (4)
  - Chills [Unknown]
  - Anxiety [Unknown]
  - Confusional state [Unknown]
  - Myalgia [Unknown]

NARRATIVE: CASE EVENT DATE: 20221020
